FAERS Safety Report 4456038-1 (Version None)
Quarter: 2004Q3

REPORT INFORMATION
  Report Type: 
  Country: None (occurrence: None)
  Receive Date: 20040831
  Receipt Date: 20040719
  Transmission Date: 20050211
  Serious: No
  Sender: FDA-Public Use
  Company Number: FABR-10683

PATIENT
  Age: 19 Year
  Sex: Male

DRUGS (1)
  1. FABRAZYME [Suspect]
     Indication: FABRY'S DISEASE

REACTIONS (3)
  - BLOOD PRESSURE DECREASED [None]
  - HYPERHIDROSIS [None]
  - PALLOR [None]
